FAERS Safety Report 9676382 (Version 1)
Quarter: 2013Q4

REPORT INFORMATION
  Report Type: Spontaneous
  Country: US (occurrence: None)
  Receive Date: 20131106
  Receipt Date: 20131106
  Transmission Date: 20140711
  Serious: Yes (Hospitalization)
  Sender: FDA-Public Use
  Company Number: UCM201310-000080

PATIENT
  Age: 19 Year
  Sex: Male

DRUGS (4)
  1. LAMOTRIGINE [Suspect]
  2. CITALOPRAM [Suspect]
  3. ARIPIPRAZOLE [Suspect]
  4. LORAZEPAM [Suspect]

REACTIONS (6)
  - Ventricular tachycardia [None]
  - Serotonin syndrome [None]
  - Electrocardiogram QRS complex prolonged [None]
  - Overdose [None]
  - Bundle branch block right [None]
  - Ventricular tachycardia [None]
